FAERS Safety Report 12539553 (Version 1)
Quarter: 2016Q3

REPORT INFORMATION
  Report Type: Report from Study
  Country: US (occurrence: US)
  Receive Date: 20160708
  Receipt Date: 20160708
  Transmission Date: 20161109
  Serious: Yes (Other)
  Sender: FDA-Public Use
  Company Number: US-AMGEN-USASL2016086701

PATIENT
  Age: 58 Year
  Sex: Female

DRUGS (1)
  1. ENBREL [Suspect]
     Active Substance: ETANERCEPT
     Indication: RHEUMATOID ARTHRITIS
     Dosage: 50 MG, UNK
     Route: 065
     Dates: start: 20130515

REACTIONS (6)
  - Spinal operation [Unknown]
  - Tumour excision [Unknown]
  - Nerve compression [Unknown]
  - Neuralgia [Unknown]
  - Muscular weakness [Unknown]
  - Cyst removal [Unknown]

NARRATIVE: CASE EVENT DATE: 20140528
